FAERS Safety Report 9881023 (Version 2)
Quarter: 2014Q1

REPORT INFORMATION
  Report Type: Spontaneous
  Country: US (occurrence: US)
  Receive Date: 20140207
  Receipt Date: 20140327
  Transmission Date: 20141002
  Serious: No
  Sender: FDA-Public Use
  Company Number: US-TEVA-461285USA

PATIENT
  Sex: Female
  Weight: 75.82 kg

DRUGS (2)
  1. PARAGARD 380A [Suspect]
     Indication: CONTRACEPTION
     Route: 015
     Dates: start: 2013, end: 20140204
  2. AMBIEN [Concomitant]
     Indication: SLEEP DISORDER

REACTIONS (1)
  - Pelvic pain [Recovered/Resolved]
